FAERS Safety Report 15250064 (Version 1)
Quarter: 2018Q3

REPORT INFORMATION
  Report Type: Spontaneous
  Country: US (occurrence: US)
  Receive Date: 20180716
  Receipt Date: 20180716
  Transmission Date: 20181010
  Serious: Yes (Life-Threatening, Hospitalization)
  Sender: FDA-Public Use
  Company Number: None

PATIENT
  Age: 58 Year
  Sex: Male

DRUGS (2)
  1. LEVOFLOXACIN. [Suspect]
     Active Substance: LEVOFLOXACIN
     Indication: BACTERIAL INFECTION
     Route: 048
     Dates: start: 20180416, end: 20180426
  2. BROMPHENIRAMINE?PSEUDOEPHEDRINE?DEXTROMETHORPHAN SOLUTION [Concomitant]
     Dates: start: 20180416, end: 20180426

REACTIONS (1)
  - Aortic dissection rupture [None]

NARRATIVE: CASE EVENT DATE: 20180707
